FAERS Safety Report 12743347 (Version 2)
Quarter: 2016Q4

REPORT INFORMATION
  Report Type: Spontaneous
  Country: RO (occurrence: RO)
  Receive Date: 20160914
  Receipt Date: 20161014
  Transmission Date: 20170207
  Serious: Yes (Death)
  Sender: FDA-Public Use
  Company Number: RO-ASTRAZENECA-2016SE96239

PATIENT
  Age: 80 Year
  Sex: Female

DRUGS (10)
  1. LAXATIVES [Concomitant]
     Active Substance: UNSPECIFIED INGREDIENT
  2. ALPRAZOLAM. [Concomitant]
     Active Substance: ALPRAZOLAM
  3. OMEZ [Concomitant]
     Active Substance: OMEPRAZOLE
  4. DETRALEX [Concomitant]
     Active Substance: DIOSMIN\HESPERIDIN
     Dosage: TWO TIMES A DAY
  5. PLAVIX [Concomitant]
     Active Substance: CLOPIDOGREL BISULFATE
     Dosage: TWO TIMES A DAY
  6. VESSEL DUE [Concomitant]
     Dosage: TWO TIMES A DAY
  7. OLAPARIB [Suspect]
     Active Substance: OLAPARIB
     Indication: OVARIAN CANCER
     Route: 048
     Dates: start: 20160816
  8. TRAMADOL. [Concomitant]
     Active Substance: TRAMADOL
  9. DEXAMETHASONE. [Concomitant]
     Active Substance: DEXAMETHASONE
     Dosage: DAILY
  10. GABAPENTIN. [Concomitant]
     Active Substance: GABAPENTIN

REACTIONS (3)
  - Hypertension [Fatal]
  - Acute respiratory failure [Fatal]
  - Cardio-respiratory arrest [Fatal]
